FAERS Safety Report 5774459-1 (Version None)
Quarter: 2008Q2

REPORT INFORMATION
  Report Type: 
  Country: None (occurrence: None)
  Receive Date: 20080616
  Receipt Date: 20080604
  Transmission Date: 20081010
  Serious: Yes (Death, Hospitalization)
  Sender: FDA-Public Use
  Company Number: JP-PFIZER INC-2008048005

PATIENT
  Age: 74 Year
  Sex: Male

DRUGS (2)
  1. SOLU-MEDROL [Suspect]
     Indication: OPTIC NEURITIS RETROBULBAR
     Dosage: DAILY DOSE:1000MG
     Route: 042
     Dates: start: 20021021, end: 20021027
  2. PREDONINE [Suspect]
     Indication: OPTIC NEURITIS RETROBULBAR
     Dates: start: 20020927, end: 20021001

REACTIONS (3)
  - EYE INFECTION FUNGAL [None]
  - OPTIC NEUROPATHY [None]
  - SINUSITIS ASPERGILLUS [None]
